FAERS Safety Report 6089136-X (Version None)
Quarter: 2009Q1

REPORT INFORMATION
  Report Type: 
  Country: None (occurrence: None)
  Receive Date: 20090224
  Receipt Date: 20090213
  Transmission Date: 20090719
  Serious: Yes (Disabling)
  Sender: FDA-Public Use
  Company Number: FR-TEVA-185547ISR

PATIENT
  Sex: Female

DRUGS (1)
  1. FLUOROURACIL [Suspect]
     Dates: start: 20090212, end: 20090212

REACTIONS (7)
  - ACCIDENTAL EXPOSURE [None]
  - ERYTHEMA [None]
  - HYPERSENSITIVITY [None]
  - INTENTIONAL DRUG MISUSE [None]
  - MUCOSA VESICLE [None]
  - OEDEMA PERIPHERAL [None]
  - PRURITUS [None]
